FAERS Safety Report 19850398 (Version 3)
Quarter: 2021Q3

REPORT INFORMATION
  Report Type: Spontaneous
  Country: US (occurrence: US)
  Receive Date: 20210917
  Receipt Date: 20210917
  Transmission Date: 20211014
  Serious: No
  Sender: FDA-Public Use
  Company Number: US-VIELABIO-VIE-2021-US-000096

PATIENT
  Age: 64 Year
  Sex: Female

DRUGS (1)
  1. UPLIZNA [Suspect]
     Active Substance: INEBILIZUMAB-CDON
     Indication: PRODUCT USED FOR UNKNOWN INDICATION
     Dosage: 300 MILLIGRAM, ONCE
     Dates: start: 20210617, end: 20210617

REACTIONS (4)
  - Inappropriate schedule of product administration [Unknown]
  - Constipation [Unknown]
  - Pollakiuria [Unknown]
  - Blood sodium decreased [Unknown]
